FAERS Safety Report 6340128-2 (Version None)
Quarter: 2009Q3

REPORT INFORMATION
  Report Type: 
  Country: None (occurrence: None)
  Receive Date: 20090903
  Receipt Date: 20090828
  Transmission Date: 20100115
  Serious: Yes (Hospitalization)
  Sender: FDA-Public Use
  Company Number: JP-MERCK-0909USA00053

PATIENT
  Age: 73 Year
  Sex: Female

DRUGS (2)
  1. STROMECTOL [Suspect]
     Route: 048
     Dates: start: 20090731, end: 20090731
  2. ZINC OXIDE SIMPLE OINTMENT [Concomitant]
     Route: 061
     Dates: start: 20090731

REACTIONS (1)
  - RESPIRATORY FAILURE [None]
